FAERS Safety Report 21559703 (Version 1)
Quarter: 2022Q4

REPORT INFORMATION
  Report Type: Spontaneous
  Country: DE (occurrence: DE)
  Receive Date: 20221107
  Receipt Date: 20221107
  Transmission Date: 20230113
  Serious: Yes (Hospitalization)
  Sender: FDA-Public Use
  Company Number: DE-ADRED-07537-02

PATIENT
  Age: 68 Year
  Sex: Male

DRUGS (10)
  1. TORSEMIDE [Suspect]
     Active Substance: TORSEMIDE
     Indication: Product used for unknown indication
     Dosage: 10 MILLIGRAM, QD (10 MG, 1-0-0-0)
     Route: 048
  2. BISOPROLOL [Concomitant]
     Active Substance: BISOPROLOL
     Dosage: 5 MILLIGRAM, BID (12 HOURS,5 MG, 1-0-1-0)
     Route: 048
  3. MELPERONE [Concomitant]
     Active Substance: MELPERONE
     Dosage: 50 MILLIGRAM, QD (50 MG, 0-0-1-0)
     Route: 048
  4. LERCANIDIPINE [Concomitant]
     Active Substance: LERCANIDIPINE
     Dosage: 10 MILLIGRAM, QD (10 MG, 1-0-0-0)
     Route: 048
  5. RAMIPRIL [Concomitant]
     Active Substance: RAMIPRIL
     Dosage: 2.5 MILLIGRAM (2.5 MG, 1-0-2-0)
     Route: 048
  6. ABILIFY [Concomitant]
     Active Substance: ARIPIPRAZOLE
     Dosage: 20 MILLIGRAM, QD (10 MG, 2-0-0-0)
     Route: 048
  7. TOUJEO [Concomitant]
     Active Substance: INSULIN GLARGINE
     Dosage: 18 IE,0-0-0-1(300UNITS/ML SOLOSTAR 1.5ML PEN)
     Route: 058
  8. ALLOPURINOL [Concomitant]
     Active Substance: ALLOPURINOL
     Dosage: 100 MILLIGRAM, QD (100 MG, 0-0-1-0)
     Route: 048
  9. AKINETON [Concomitant]
     Active Substance: BIPERIDEN HYDROCHLORIDE
     Dosage: 4 MILLIGRAM, Q8H (4 MG, 1-1-1-0)
     Route: 048
  10. MOXONIDINE [Concomitant]
     Active Substance: MOXONIDINE
     Dosage: 0.2 MILLIGRAM, BID (12 HOURS,0.2 MG, 1-0-1-0)
     Route: 048

REACTIONS (2)
  - Pyuria [Unknown]
  - General physical health deterioration [Unknown]
